FAERS Safety Report 9889099 (Version 2)
Quarter: 2014Q1

REPORT INFORMATION
  Report Type: Spontaneous
  Country: US (occurrence: US)
  Receive Date: 20140211
  Receipt Date: 20140219
  Transmission Date: 20141002
  Serious: Yes (Other)
  Sender: FDA-Public Use
  Company Number: US-GILEAD-2014-0094203

PATIENT
  Age: 58 Year
  Sex: Female

DRUGS (1)
  1. LETAIRIS [Suspect]
     Indication: PRODUCT USED FOR UNKNOWN INDICATION
     Dosage: 5 MG, UNK
     Route: 065
     Dates: start: 20091217

REACTIONS (9)
  - Pneumonia [Unknown]
  - Emphysema [Unknown]
  - Partial lung resection [Unknown]
  - Pleurisy [Unknown]
  - Lower respiratory tract inflammation [Unknown]
  - Weight decreased [Unknown]
  - Malaise [Unknown]
  - Feeling abnormal [Unknown]
  - Painful respiration [Unknown]
